APPROVED DRUG PRODUCT: LORATADINE AND PSEUDOEPHEDRINE SULFATE
Active Ingredient: LORATADINE; PSEUDOEPHEDRINE SULFATE
Strength: 10MG;240MG
Dosage Form/Route: TABLET, EXTENDED RELEASE;ORAL
Application: A075706 | Product #001
Applicant: P AND L DEVELOPMENT LLC
Approved: Feb 21, 2003 | RLD: No | RS: No | Type: OTC